FAERS Safety Report 24301623 (Version 2)
Quarter: 2024Q3

REPORT INFORMATION
  Report Type: Spontaneous
  Country: PT (occurrence: PT)
  Receive Date: 20240910
  Receipt Date: 20240926
  Transmission Date: 20241016
  Serious: Yes (Hospitalization, Other)
  Sender: HIKMA
  Company Number: PT-HIKMA PHARMACEUTICALS USA INC.-PT-H14001-24-08308

PATIENT
  Age: 47 Year
  Sex: Female

DRUGS (8)
  1. FLUOROURACIL [Suspect]
     Active Substance: FLUOROURACIL
     Indication: Ductal adenocarcinoma of pancreas
     Dosage: FIRST DAY OF THE FIRST CYCLE OF CHEMOTHERAPY,  2400 MG/M2, INFUSION IMPLANTOFIX FOR 46 HOURS - 3528
     Route: 042
     Dates: start: 20221227, end: 202212
  2. LEUCOVORIN [Suspect]
     Active Substance: LEUCOVORIN\LEUCOVORIN CALCIUM
     Dosage: NOT APPLICABLE (COMPANY^S SUSPECT PRODUCT NOT ADMINISTERED)
  3. IRINOTECAN [Suspect]
     Active Substance: IRINOTECAN
     Indication: Ductal adenocarcinoma of pancreas
     Dosage: FIRST DAY OF THE FIRST CYCLE OF CHEMOTHERAPY; 150 MG/M2, 220.5 MG IN 250 ML NACL 0.9%; ONE DOSAGE (O
     Route: 042
     Dates: start: 20221227, end: 20221227
  4. LEVOLEUCOVORIN DISODIUM [Suspect]
     Active Substance: LEVOLEUCOVORIN DISODIUM
     Indication: Ductal adenocarcinoma of pancreas
     Dosage: FIRST DAY OF THE FIRST CYCLE OF CHEMOTHERAPY, 295 MG IN 250 ML; ONE DOSAGE (ONCE)
     Route: 042
     Dates: start: 20221227, end: 20221227
  5. OXALIPLATIN [Suspect]
     Active Substance: OXALIPLATIN
     Indication: Ductal adenocarcinoma of pancreas
     Dosage: FIRST DAY OF THE FIRST CYCLE OF CHEMOTHERAPY; 85 MG/M2, 125 MG IN 250 ML OF 5% GLUCOSE; ONE DOSAGE (
     Route: 042
     Dates: start: 20221227, end: 20221227
  6. DEXTROSE [Concomitant]
     Active Substance: DEXTROSE\DEXTROSE MONOHYDRATE
     Indication: Product used for unknown indication
     Dosage: FIRST DAY OF THE FIRST CYCLE OF CHEMOTHERAPY; 85 MG/M2, 125 MG IN 250 ML OF 5% GLUCOSE, ONE DOSAGE (
     Route: 042
     Dates: start: 20221227, end: 20221227
  7. SODIUM CHLORIDE [Concomitant]
     Active Substance: SODIUM CHLORIDE
     Indication: Product used for unknown indication
     Dosage: FIRST DAY OF THE FIRST CYCLE OF CHEMOTHERAPY,  2400 MG/M2, INFUSION IMPLANTOFIX FOR 46 HOURS - 3528
     Route: 042
     Dates: start: 20221227, end: 20221227
  8. SODIUM CHLORIDE [Concomitant]
     Active Substance: SODIUM CHLORIDE
     Dosage: FIRST DAY OF THE FIRST CYCLE OF CHEMOTHERAPY; 150 MG/M2, 220.5 MG IN 250 ML NACL 0.9%; ONE DOSAGE (O
     Route: 042
     Dates: start: 20221227, end: 20221227

REACTIONS (3)
  - Cytotoxic lesions of corpus callosum [Recovered/Resolved]
  - Ophthalmoplegia [Recovered/Resolved]
  - Toxic encephalopathy [Recovered/Resolved]

NARRATIVE: CASE EVENT DATE: 20221229
